FAERS Safety Report 25910388 (Version 1)
Quarter: 2025Q4

REPORT INFORMATION
  Report Type: Report from Study
  Country: US (occurrence: US)
  Receive Date: 20251012
  Receipt Date: 20251012
  Transmission Date: 20260117
  Serious: Yes (Other)
  Sender: ABBVIE
  Company Number: US-ABBVIE-6487455

PATIENT
  Age: 63 Year
  Sex: Male

DRUGS (1)
  1. VYALEV [Suspect]
     Active Substance: FOSCARBIDOPA\FOSLEVODOPA
     Indication: Parkinson^s disease
     Dosage: FREQUENCY: CONTINUOUS 24-HOUR INFUSION
     Route: 058
     Dates: start: 20250528

REACTIONS (6)
  - Suicidal ideation [Unknown]
  - Confusional state [Unknown]
  - Device issue [Unknown]
  - On and off phenomenon [Unknown]
  - Incorrect dose administered [Unknown]
  - Bradykinesia [Unknown]

NARRATIVE: CASE EVENT DATE: 20250101
